FAERS Safety Report 18508518 (Version 2)
Quarter: 2021Q1

REPORT INFORMATION
  Report Type: Spontaneous
  Country: US (occurrence: US)
  Receive Date: 20201116
  Receipt Date: 20210201
  Transmission Date: 20210419
  Serious: Yes (Hospitalization)
  Sender: FDA-Public Use
  Company Number: US-JNJFOC-20201124035

PATIENT
  Age: 76 Year
  Sex: Male

DRUGS (25)
  1. ZYTIGA [Suspect]
     Active Substance: ABIRATERONE ACETATE
     Indication: PROSTATE CANCER
     Route: 048
     Dates: start: 2016
  2. VITAMINE C [Concomitant]
     Active Substance: ASCORBIC ACID
  3. LUPRON [Concomitant]
     Active Substance: LEUPROLIDE ACETATE
     Dosage: SHOTS
     Route: 065
  4. PREDNISONE. [Concomitant]
     Active Substance: PREDNISONE
     Indication: NEOPLASM MALIGNANT
     Route: 065
  5. MELATONIN [Concomitant]
     Active Substance: MELATONIN
     Indication: SLEEP DISORDER
  6. MIRALAX [Concomitant]
     Active Substance: POLYETHYLENE GLYCOL 3350
     Route: 065
  7. ZYTIGA [Suspect]
     Active Substance: ABIRATERONE ACETATE
     Route: 048
     Dates: start: 20190412
  8. HYDROXYZINE HYDROCHLORIDE. [Concomitant]
     Active Substance: HYDROXYZINE HYDROCHLORIDE
     Indication: RHEUMATOID ARTHRITIS
     Route: 065
  9. BENEFIBER [Concomitant]
     Active Substance: STARCH, WHEAT
     Dosage: UNSPECIFIED TSP/DAY
     Route: 065
  10. GINSENG G [Concomitant]
     Indication: ENERGY INCREASED
  11. VITAMIN D3 [Concomitant]
     Active Substance: CHOLECALCIFEROL
     Indication: NUTRITIONAL SUPPLEMENTATION
     Route: 042
  12. VITAMIN B3 [Concomitant]
     Active Substance: NIACIN
     Route: 060
  13. XGEVA [Concomitant]
     Active Substance: DENOSUMAB
     Indication: OSTEOPOROSIS
     Dosage: SHOTS
     Route: 065
  14. MYRBETRIQ [Concomitant]
     Active Substance: MIRABEGRON
     Indication: HYPERTONIC BLADDER
     Route: 065
  15. ECHINACEA [ECHINACEA PURPUREA] [Concomitant]
     Indication: NASOPHARYNGITIS
     Dosage: OCT TO MAY OF UNSPECIFIED YEAR
     Route: 065
  16. FISH OIL [Concomitant]
     Active Substance: FISH OIL
     Indication: NUTRITIONAL SUPPLEMENTATION
     Route: 065
  17. VITAMIN B6 [Concomitant]
     Active Substance: PYRIDOXINE HYDROCHLORIDE
     Indication: ARTHROPATHY
     Route: 065
  18. L?LYSINE [LYSINE] [Concomitant]
     Indication: NUTRITIONAL SUPPLEMENTATION
     Route: 065
  19. CALCIUM CITRATE [Concomitant]
     Active Substance: CALCIUM CITRATE
     Indication: NUTRITIONAL SUPPLEMENTATION
     Route: 065
  20. XGEVA [Concomitant]
     Active Substance: DENOSUMAB
     Indication: PROSTATE CANCER
  21. FOLIC ACID. [Concomitant]
     Active Substance: FOLIC ACID
     Indication: RHEUMATOID ARTHRITIS
     Dosage: FOR SIDE EFFECTS FROM RHEUMATOID ARTHRITIS
     Route: 065
  22. METHOTREXATE. [Concomitant]
     Active Substance: METHOTREXATE
     Indication: RHEUMATOID ARTHRITIS
     Route: 065
  23. VALACYCLOVIR [Concomitant]
     Active Substance: VALACYCLOVIR HYDROCHLORIDE
     Indication: HERPES VIRUS INFECTION
  24. PB8 PROBIOTIC [Concomitant]
     Indication: PROPHYLAXIS
     Route: 065
  25. AMOXICILLIN. [Concomitant]
     Active Substance: AMOXICILLIN
     Dosage: WHEN THE PATIENT HAD DENTAL WORK DONE
     Route: 065

REACTIONS (2)
  - Endoscopy [Unknown]
  - Adverse event [Unknown]

NARRATIVE: CASE EVENT DATE: 20200929
